FAERS Safety Report 16970300 (Version 1)
Quarter: 2019Q4

REPORT INFORMATION
  Report Type: Spontaneous
  Country: US (occurrence: US)
  Receive Date: 20191029
  Receipt Date: 20191029
  Transmission Date: 20200122
  Serious: Yes (Other)
  Sender: FDA-Public Use
  Company Number: US-GILEAD-2019-0434713

PATIENT
  Sex: Male

DRUGS (4)
  1. TRUVADA [Suspect]
     Active Substance: EMTRICITABINE\TENOFOVIR DISOPROXIL FUMARATE
     Indication: HIV INFECTION
     Dosage: UNK
     Route: 048
     Dates: start: 2005, end: 2006
  2. STRIBILD [Suspect]
     Active Substance: COBICISTAT\ELVITEGRAVIR\EMTRICITABINE\TENOFOVIR DISOPROXIL FUMARATE
     Indication: HIV INFECTION
     Dosage: UNK
     Route: 048
     Dates: start: 2012, end: 2017
  3. TRUVADA [Suspect]
     Active Substance: EMTRICITABINE\TENOFOVIR DISOPROXIL FUMARATE
     Dosage: UNK
     Route: 048
     Dates: start: 2007, end: 2011
  4. ATRIPLA [Suspect]
     Active Substance: EFAVIRENZ\EMTRICITABINE\TENOFOVIR DISOPROXIL FUMARATE
     Indication: HIV INFECTION
     Dosage: UNK
     Route: 048
     Dates: start: 2006, end: 2007

REACTIONS (12)
  - Pain [Not Recovered/Not Resolved]
  - Nephropathy [Not Recovered/Not Resolved]
  - Arthritis [Not Recovered/Not Resolved]
  - Back pain [Not Recovered/Not Resolved]
  - Economic problem [Not Recovered/Not Resolved]
  - Anhedonia [Not Recovered/Not Resolved]
  - Spinal osteoarthritis [Not Recovered/Not Resolved]
  - Vitamin D deficiency [Not Recovered/Not Resolved]
  - Osteonecrosis [Not Recovered/Not Resolved]
  - Emotional distress [Not Recovered/Not Resolved]
  - Tooth disorder [Not Recovered/Not Resolved]
  - Anxiety [Not Recovered/Not Resolved]
